FAERS Safety Report 10568524 (Version 1)
Quarter: 2014Q4

REPORT INFORMATION
  Report Type: Spontaneous
  Country: US (occurrence: US)
  Receive Date: 20141106
  Receipt Date: 20141106
  Transmission Date: 20150529
  Serious: Yes (Life-Threatening, Hospitalization, Other)
  Sender: FDA-Public Use
  Company Number: US-ELI_LILLY_AND_COMPANY-US201410010925

PATIENT
  Age: 51 Year
  Sex: Male

DRUGS (3)
  1. PROPOFOL. [Concomitant]
     Active Substance: PROPOFOL
     Indication: SEDATION
     Dosage: 30 ?G/KG, OTHER
     Route: 042
  2. FENTANYL. [Concomitant]
     Active Substance: FENTANYL
     Indication: SEDATION
     Dosage: 100 UG, OTHER
     Route: 042
  3. FLUOXETINE HYDROCHLORIDE. [Suspect]
     Active Substance: FLUOXETINE HYDROCHLORIDE
     Indication: MAJOR DEPRESSION
     Dosage: 40 MG, QD
     Route: 065

REACTIONS (9)
  - Cellulitis [Recovered/Resolved]
  - Anaemia [Unknown]
  - Blast injury [Recovered/Resolved]
  - Thermal burn [Recovered/Resolved]
  - Acute respiratory distress syndrome [Recovered/Resolved]
  - Pulmonary embolism [Recovered/Resolved]
  - Drug withdrawal syndrome [Recovered/Resolved]
  - Catatonia [Recovered/Resolved]
  - Encephalopathy [Recovered/Resolved]
